FAERS Safety Report 20616858 (Version 1)
Quarter: 2022Q1

REPORT INFORMATION
  Report Type: Spontaneous
  Country: US (occurrence: None)
  Receive Date: 20220321
  Receipt Date: 20220321
  Transmission Date: 20220423
  Serious: No
  Sender: FDA-Public Use
  Company Number: 2022A118781

PATIENT

DRUGS (1)
  1. NEXIUM 24HR [Suspect]
     Active Substance: ESOMEPRAZOLE MAGNESIUM
     Indication: Gastrooesophageal reflux disease
     Dosage: 2 DF, QD
     Route: 048

REACTIONS (5)
  - Tooth loss [Unknown]
  - Tooth fracture [Unknown]
  - Renal disorder [Unknown]
  - Back disorder [Unknown]
  - Bladder disorder [Unknown]
